FAERS Safety Report 24130729 (Version 2)
Quarter: 2024Q3

REPORT INFORMATION
  Report Type: Spontaneous
  Country: CN (occurrence: CN)
  Receive Date: 20240724
  Receipt Date: 20240807
  Transmission Date: 20241017
  Serious: Yes (Other)
  Sender: BLUEPRINT MEDICINES
  Company Number: CN-CSTONE PHARMACEUTICALS (SUZHOU) CO., LTD.-2024CN00960

PATIENT
  Age: 57 Year
  Sex: Female

DRUGS (2)
  1. AYVAKIT [Suspect]
     Active Substance: AVAPRITINIB
     Indication: Advanced systemic mastocytosis
     Route: 065
     Dates: start: 20230426
  2. AYVAKIT [Suspect]
     Active Substance: AVAPRITINIB
     Indication: Acute myeloid leukaemia
     Route: 065
     Dates: start: 20230524, end: 20230607

REACTIONS (2)
  - Myelosuppression [Recovering/Resolving]
  - Off label use [Unknown]

NARRATIVE: CASE EVENT DATE: 20230426
